FAERS Safety Report 11080988 (Version 1)
Quarter: 2015Q2

REPORT INFORMATION
  Report Type: Spontaneous
  Country: US (occurrence: US)
  Receive Date: 20150501
  Receipt Date: 20150501
  Transmission Date: 20150821
  Serious: No
  Sender: FDA-Public Use
  Company Number: US-009507513-1504USA021544

PATIENT
  Age: 26 Year
  Sex: Female

DRUGS (1)
  1. NEXPLANON [Suspect]
     Active Substance: ETONOGESTREL
     Indication: CONTRACEPTION
     Dosage: 68 MG, ONCE EVERY THREE YEARS
     Route: 059
     Dates: end: 20150412

REACTIONS (2)
  - Rash [Recovering/Resolving]
  - Implant site rash [Recovering/Resolving]

NARRATIVE: CASE EVENT DATE: 20150412
